FAERS Safety Report 5772107-8 (Version None)
Quarter: 2008Q2

REPORT INFORMATION
  Report Type: 
  Country: None (occurrence: None)
  Receive Date: 20080601
  Receipt Date: 20080115
  Transmission Date: 20081010
  Serious: No
  Sender: FDA-Public Use
  Company Number: US200709002274

PATIENT
  Age: 64 Year
  Sex: Female
  Weight: 86.6 kg

DRUGS (7)
  1. BYETTA [Suspect]
     Indication: INSULIN-REQUIRING TYPE 2 DIABETES MELLITUS
     Dosage: 5 UG, 2/D, SUBCUTANEOUS ; 10 UG, 2/D, SUBCUTANEOUS ; 5 UG, 2/D, SUBCUTANEOUS
     Route: 058
     Dates: start: 20070701, end: 20070801
  2. BYETTA [Suspect]
     Indication: INSULIN-REQUIRING TYPE 2 DIABETES MELLITUS
     Dosage: 5 UG, 2/D, SUBCUTANEOUS ; 10 UG, 2/D, SUBCUTANEOUS ; 5 UG, 2/D, SUBCUTANEOUS
     Route: 058
     Dates: start: 20070801, end: 20070801
  3. BYETTA [Suspect]
     Indication: INSULIN-REQUIRING TYPE 2 DIABETES MELLITUS
     Dosage: 5 UG, 2/D, SUBCUTANEOUS ; 10 UG, 2/D, SUBCUTANEOUS ; 5 UG, 2/D, SUBCUTANEOUS
     Route: 058
     Dates: start: 20070801, end: 20070911
  4. BYETTA [Suspect]
     Dosage: 10 UG, 2/D, SUBCUTANEOUS
     Route: 058
     Dates: start: 20071001
  5. INSULIN (INSULIN) [Concomitant]
  6. GLIMEPIRIDE [Concomitant]
  7. METFORMIN HCL [Concomitant]

REACTIONS (7)
  - BLOOD GLUCOSE DECREASED [None]
  - DECREASED APPETITE [None]
  - DIZZINESS [None]
  - HEADACHE [None]
  - NAUSEA [None]
  - SOMNOLENCE [None]
  - WEIGHT DECREASED [None]
